FAERS Safety Report 17904756 (Version 1)
Quarter: 2020Q2

REPORT INFORMATION
  Report Type: Spontaneous
  Country: AF (occurrence: AF)
  Receive Date: 20200616
  Receipt Date: 20200616
  Transmission Date: 20200714
  Serious: No
  Sender: FDA-Public Use
  Company Number: None

PATIENT
  Age: 83 Year
  Sex: Male
  Weight: 91.1 kg

DRUGS (1)
  1. DARZALEX [Suspect]
     Active Substance: DARATUMUMAB
     Indication: PLASMA CELL MYELOMA
     Dosage: ?          OTHER FREQUENCY:WEEKLY;?
     Route: 041
     Dates: start: 20200604

REACTIONS (2)
  - Diarrhoea [None]
  - Throat irritation [None]

NARRATIVE: CASE EVENT DATE: 20200604
